FAERS Safety Report 4863041-6 (Version None)
Quarter: 2005Q4

REPORT INFORMATION
  Report Type: 
  Country: None (occurrence: None)
  Receive Date: 20051221
  Receipt Date: 20051005
  Transmission Date: 20060501
  Serious: Yes (Hospitalization)
  Sender: FDA-Public Use
  Company Number: US-MERCK-0510USA05487

PATIENT
  Age: 61 Year
  Sex: Female
  Weight: 86 kg

DRUGS (6)
  1. VIOXX [Suspect]
     Indication: ARTHRITIS
     Route: 048
     Dates: start: 20000713, end: 20020909
  2. ZOCOR [Concomitant]
     Route: 065
  3. LOTENSIN [Concomitant]
     Route: 065
  4. PREMPRO [Concomitant]
     Route: 065
  5. LEVOXYL [Concomitant]
     Route: 065
  6. LOTRISONE [Concomitant]
     Route: 065

REACTIONS (3)
  - EMOTIONAL DISORDER [None]
  - MENTAL DISORDER [None]
  - MYOCARDIAL INFARCTION [None]
